FAERS Safety Report 22086852 (Version 10)
Quarter: 2024Q1

REPORT INFORMATION
  Report Type: Report from Study
  Country: US (occurrence: US)
  Receive Date: 20230312
  Receipt Date: 20240112
  Transmission Date: 20240410
  Serious: Yes (Other)
  Sender: FDA-Public Use
  Company Number: US-002147023-NVSC2023US055743

PATIENT
  Age: 70 Year
  Sex: Female

DRUGS (4)
  1. LEQVIO [Suspect]
     Active Substance: INCLISIRAN SODIUM
     Indication: Product used for unknown indication
     Dosage: UNK
     Route: 058
     Dates: start: 20230224
  2. LEQVIO [Suspect]
     Active Substance: INCLISIRAN SODIUM
     Dosage: UNK
     Route: 058
     Dates: start: 202302
  3. LEQVIO [Suspect]
     Active Substance: INCLISIRAN SODIUM
     Dosage: UNK
     Route: 058
     Dates: start: 20230302
  4. LEQVIO [Suspect]
     Active Substance: INCLISIRAN SODIUM
     Dosage: UNK
     Route: 058
     Dates: start: 20230823

REACTIONS (17)
  - Pituitary tumour [Unknown]
  - Gastroenteritis viral [Unknown]
  - Dizziness [Recovering/Resolving]
  - Nausea [Recovering/Resolving]
  - Weight decreased [Unknown]
  - Decreased appetite [Unknown]
  - Diarrhoea [Unknown]
  - Abdominal discomfort [Unknown]
  - Blood pressure increased [Recovering/Resolving]
  - Malaise [Unknown]
  - Rhinorrhoea [Unknown]
  - Contusion [Unknown]
  - Fall [Unknown]
  - Blood thyroid stimulating hormone increased [Unknown]
  - Headache [Unknown]
  - Abdominal pain [Unknown]
  - Sinusitis [Unknown]

NARRATIVE: CASE EVENT DATE: 20230301
